FAERS Safety Report 9304989 (Version 2)
Quarter: 2013Q2

REPORT INFORMATION
  Report Type: Spontaneous
  Country: US (occurrence: None)
  Receive Date: 20130521
  Receipt Date: 20130607
  Transmission Date: 20140414
  Serious: Yes (Hospitalization)
  Sender: FDA-Public Use
  Company Number: ZYD-13-AE-132

PATIENT
  Sex: Male

DRUGS (1)
  1. WARFARIN [Suspect]
     Route: 065

REACTIONS (2)
  - International normalised ratio increased [None]
  - Respiratory disorder [None]
